FAERS Safety Report 4864715-3 (Version None)
Quarter: 2005Q4

REPORT INFORMATION
  Report Type: 
  Country: None (occurrence: None)
  Receive Date: 20051222
  Receipt Date: 20050218
  Transmission Date: 20060501
  Serious: Yes (Hospitalization)
  Sender: FDA-Public Use
  Company Number: US-MERCK-0502USA02842

PATIENT
  Age: 74 Year
  Sex: Female
  Weight: 91 kg

DRUGS (6)
  1. VIOXX [Suspect]
     Indication: ARTHRITIS
     Route: 048
     Dates: start: 20001001, end: 20040901
  2. PRILOSEC [Concomitant]
     Route: 065
  3. ALLEGRA [Concomitant]
     Route: 065
  4. MEVACOR [Concomitant]
     Route: 065
  5. DYAZIDE [Concomitant]
     Route: 065
  6. ASPIRIN [Concomitant]
     Route: 065

REACTIONS (6)
  - CARDIAC DISORDER [None]
  - GASTROOESOPHAGEAL REFLUX DISEASE [None]
  - HYPERTENSION [None]
  - JOINT INJURY [None]
  - KNEE ARTHROPLASTY [None]
  - MYOCARDIAL INFARCTION [None]
